FAERS Safety Report 6266059-4 (Version None)
Quarter: 2009Q3

REPORT INFORMATION
  Report Type: 
  Country: None (occurrence: None)
  Receive Date: 20090709
  Receipt Date: 20090624
  Transmission Date: 20100115
  Serious: Yes (Other)
  Sender: FDA-Public Use
  Company Number: 1000007200

PATIENT
  Sex: 0

DRUGS (1)
  1. DINOPROSTONE (DINOPROSTONE) (SUPPOSITORY) [Suspect]
     Dosage: (10 MG), TRANSPLACENTAL
     Route: 064

REACTIONS (2)
  - FOETAL HEART RATE DISORDER [None]
  - MATERNAL DRUGS AFFECTING FOETUS [None]
